FAERS Safety Report 15984979 (Version 2)
Quarter: 2019Q2

REPORT INFORMATION
  Report Type: Spontaneous
  Country: GR (occurrence: GR)
  Receive Date: 20190220
  Receipt Date: 20190618
  Transmission Date: 20190711
  Serious: Yes (Death)
  Sender: FDA-Public Use
  Company Number: GR-MYLANLABS-2019M1013596

PATIENT
  Age: 12 Year
  Sex: Male

DRUGS (4)
  1. GEMCITABINE [Suspect]
     Active Substance: GEMCITABINE\GEMCITABINE HYDROCHLORIDE
     Indication: NEUROENDOCRINE TUMOUR
     Dosage: UNK
     Route: 065
  2. ETOPOSIDE. [Suspect]
     Active Substance: ETOPOSIDE
     Indication: NEUROENDOCRINE TUMOUR
     Dosage: UNK
     Route: 065
  3. CISPLATIN. [Suspect]
     Active Substance: CISPLATIN
     Indication: NEUROENDOCRINE TUMOUR
     Dosage: UNK
     Route: 065
  4. DOCETAXEL. [Suspect]
     Active Substance: DOCETAXEL
     Indication: NEUROENDOCRINE TUMOUR
     Dosage: UNK
     Route: 065

REACTIONS (3)
  - Malignant neoplasm progression [Fatal]
  - Metastases to central nervous system [Fatal]
  - Disease progression [Fatal]
